FAERS Safety Report 6080362-2 (Version None)
Quarter: 2009Q1

REPORT INFORMATION
  Report Type: 
  Country: None (occurrence: None)
  Receive Date: 20090217
  Receipt Date: 20090202
  Transmission Date: 20090719
  Serious: Yes (Other)
  Sender: FDA-Public Use
  Company Number: JP-PFIZER INC-2009169174

PATIENT

DRUGS (1)
  1. AMLODIPINE BESYLATE [Suspect]
     Dosage: UNK

REACTIONS (1)
  - ATRIOVENTRICULAR BLOCK [None]
